FAERS Safety Report 7819720-1 (Version None)
Quarter: 2011Q4

REPORT INFORMATION
  Report Type: 
  Country: None (occurrence: None)
  Receive Date: 20111018
  Receipt Date: 20110223
  Transmission Date: 20120403
  Serious: No
  Sender: FDA-Public Use
  Company Number: US-ASTRAZENECA-2011SE10298

PATIENT
  Age: 47 Year
  Sex: Female

DRUGS (6)
  1. PROAIR HFA [Concomitant]
  2. SYMBICORT [Suspect]
     Indication: PULMONARY MASS
     Dosage: 2 PUFFS TWO TIMES A DAY
     Route: 055
     Dates: start: 20101215
  3. SYNTHROID [Concomitant]
  4. SYMBICORT [Suspect]
     Indication: DYSPNOEA
     Dosage: 2 PUFFS TWO TIMES A DAY
     Route: 055
     Dates: start: 20101215
  5. ATROVENT [Concomitant]
  6. ASPIRIN [Concomitant]

REACTIONS (1)
  - DRY EYE [None]
